FAERS Safety Report 9712329 (Version 1)
Quarter: 2013Q4

REPORT INFORMATION
  Report Type: Spontaneous
  Country: US (occurrence: None)
  Receive Date: 20131125
  Receipt Date: 20131125
  Transmission Date: 20140711
  Serious: Yes (Hospitalization, Disabling)
  Sender: FDA-Public Use
  Company Number: None

PATIENT
  Sex: Female

DRUGS (1)
  1. MIRENA (LEVONORGESTREL-RELEASING INTRAUTERINE SYSTEM) [Suspect]
     Indication: CONTRACEPTION
     Route: 015
     Dates: start: 200812, end: 20130423

REACTIONS (6)
  - Cerebrospinal fluid leakage [None]
  - Vision blurred [None]
  - Meningitis bacterial [None]
  - Brain herniation [None]
  - Embedded device [None]
  - Uterine perforation [None]
